FAERS Safety Report 8952626 (Version 1)
Quarter: 2012Q4

REPORT INFORMATION
  Report Type: 
  Country: US (occurrence: US)
  Receive Date: 20121205
  Receipt Date: 20121205
  Transmission Date: 20130627
  Serious: No
  Sender: FDA-Public Use
  Company Number: US-VERTEX PHARMACEUTICALS INC.-2012-025585

PATIENT
  Sex: Female
  Weight: 79 kg

DRUGS (5)
  1. VX-950 (TELAPREVIR) [Suspect]
     Indication: HEPATITIS C
     Dosage: 750 mg, tid
     Route: 048
  2. SYNTHROID [Concomitant]
     Dosage: 88 ?g, UNK
  3. PRILOSEC                           /00661201/ [Concomitant]
     Dosage: 20 mg, UNK
  4. ASPIRIN BUFFERED [Concomitant]
     Dosage: 325 mg, UNK
  5. PROCRIT                            /00909301/ [Concomitant]
     Dosage: 10000 ml, UNK

REACTIONS (1)
  - Anaemia [Unknown]
